FAERS Safety Report 17651499 (Version 1)
Quarter: 2020Q2

REPORT INFORMATION
  Report Type: Spontaneous
  Country: US (occurrence: US)
  Receive Date: 20200408
  Receipt Date: 20200408
  Transmission Date: 20200713
  Serious: No
  Sender: FDA-Public Use
  Company Number: None

PATIENT
  Age: 62 Year
  Sex: Female

DRUGS (2)
  1. EXEMESTANE. [Concomitant]
     Active Substance: EXEMESTANE
  2. IBRANCE [Suspect]
     Active Substance: PALBOCICLIB
     Indication: BREAST CANCER
     Dosage: ?          OTHER DOSE:125 QD FOR 21 DAYS;OTHER FREQUENCY:OTHER;?
     Route: 048
     Dates: start: 201909

REACTIONS (2)
  - Viral infection [None]
  - Therapy cessation [None]

NARRATIVE: CASE EVENT DATE: 20200408
